FAERS Safety Report 18580485 (Version 2)
Quarter: 2021Q1

REPORT INFORMATION
  Report Type: Spontaneous
  Country: UA (occurrence: UA)
  Receive Date: 20201204
  Receipt Date: 20210121
  Transmission Date: 20210419
  Serious: Yes (Other)
  Sender: FDA-Public Use
  Company Number: UA-ASTRAZENECA-2020SF59700

PATIENT
  Sex: Male

DRUGS (10)
  1. BRILINTA [Suspect]
     Active Substance: TICAGRELOR
     Indication: STENT PLACEMENT
     Dosage: 90.0MG UNKNOWN
     Route: 048
     Dates: start: 20201016
  2. CORVITIN [Concomitant]
  3. CLEXANE [Concomitant]
     Active Substance: ENOXAPARIN SODIUM
  4. VALSOCOR [Concomitant]
  5. ATORIS [Concomitant]
     Active Substance: ATORVASTATIN CALCIUM
  6. METAPROLOL [Concomitant]
     Active Substance: METOPROLOL
  7. NOLPAZA [Concomitant]
     Active Substance: PANTOPRAZOLE SODIUM
  8. BRILINTA [Suspect]
     Active Substance: TICAGRELOR
     Indication: ACUTE CORONARY SYNDROME
     Dosage: 90.0MG UNKNOWN
     Route: 048
     Dates: start: 20201016
  9. EPLETOR [Concomitant]
  10. ASPIRIN?CARDIO [Concomitant]

REACTIONS (1)
  - Vascular stent thrombosis [Recovered/Resolved]

NARRATIVE: CASE EVENT DATE: 20201022
